FAERS Safety Report 20313404 (Version 3)
Quarter: 2022Q1

REPORT INFORMATION
  Report Type: Spontaneous
  Country: DE (occurrence: DE)
  Receive Date: 20220110
  Receipt Date: 20220316
  Transmission Date: 20220423
  Serious: Yes (Other)
  Sender: FDA-Public Use
  Company Number: DE-ADVANZ PHARMA-202112008695

PATIENT

DRUGS (1)
  1. HYDROCHLOROTHIAZIDE\METOPROLOL [Suspect]
     Active Substance: HYDROCHLOROTHIAZIDE\METOPROLOL
     Indication: Product used for unknown indication
     Dosage: 95 MG, (BELOC-ZOKCOMP FOR 15 YEARS)
     Route: 065
     Dates: start: 2006

REACTIONS (2)
  - Polyneuropathy [Unknown]
  - Skin cancer [Unknown]
